FAERS Safety Report 5372797-8 (Version None)
Quarter: 2007Q2

REPORT INFORMATION
  Report Type: 
  Country: None (occurrence: None)
  Receive Date: 20070626
  Receipt Date: 20070618
  Transmission Date: 20071010
  Serious: Yes (Other)
  Sender: FDA-Public Use
  Company Number: 070618-0000605

PATIENT
  Age: 11 Year
  Sex: Male

DRUGS (1)
  1. ELSPAR [Suspect]
     Indication: ACUTE LYMPHOCYTIC LEUKAEMIA

REACTIONS (2)
  - PANCREATIC PSEUDOCYST [None]
  - PANCREATITIS ACUTE [None]
